FAERS Safety Report 10502655 (Version 1)
Quarter: 2014Q4

REPORT INFORMATION
  Report Type: Spontaneous
  Country: US (occurrence: None)
  Receive Date: 20141003
  Receipt Date: 20141003
  Transmission Date: 20150528
  Serious: Yes (Other)
  Sender: FDA-Public Use
  Company Number: US-H14001-14-00891

PATIENT
  Age: 77 Year
  Sex: Male

DRUGS (8)
  1. CISPLATIN (CISPLATIN) [Suspect]
     Active Substance: CISPLATIN
     Indication: PLASMA CELL MYELOMA
     Dates: start: 200409, end: 200902
  2. DOXORUBICIN (DOXORUBICIN) [Suspect]
     Active Substance: DOXORUBICIN
     Indication: PLASMA CELL MYELOMA
     Dates: start: 200309, end: 201311
  3. DEXAMETHASONE. [Suspect]
     Active Substance: DEXAMETHASONE
     Indication: PLASMA CELL MYELOMA
     Dates: end: 200309
  4. CYCLOPHOSPHAMIDE (CYCLOPHOSPHAMIDE) (UNKNOWN) (CYCLOPHOSAPHAMIDE) [Suspect]
     Active Substance: CYCLOPHOSPHAMIDE
     Indication: PLASMA CELL MYELOMA
     Dates: start: 200309, end: 200311
  5. INTERFERON(INTERFERON)(PREPARATION FOR EXTERNAL USE(NOS)(INTERFERON) [Concomitant]
  6. THALIDOMIDE [Suspect]
     Active Substance: THALIDOMIDE
     Indication: PLASMA CELL MYELOMA
     Dates: start: 200309, end: 200311
  7. ETOPOSIDE (ETOPOSIDE) [Suspect]
     Active Substance: ETOPOSIDE
     Indication: PLASMA CELL MYELOMA
     Dates: start: 200309, end: 200311
  8. VELCADE [Suspect]
     Active Substance: BORTEZOMIB
     Indication: PLASMA CELL MYELOMA
     Dates: end: 201204

REACTIONS (3)
  - Plasma cell myeloma [None]
  - Hepatitis B [None]
  - Treatment noncompliance [None]

NARRATIVE: CASE EVENT DATE: 200409
